FAERS Safety Report 9453144 (Version 1)
Quarter: 2013Q3

REPORT INFORMATION
  Report Type: Report from Study
  Country: AR (occurrence: AR)
  Receive Date: 20130812
  Receipt Date: 20130812
  Transmission Date: 20140515
  Serious: Yes (Hospitalization)
  Sender: FDA-Public Use
  Company Number: PHHY2013AR086277

PATIENT
  Sex: Female

DRUGS (2)
  1. DIOVAN [Suspect]
     Indication: HYPERTENSION
     Dosage: 80 MG, DAILY
     Dates: start: 201305, end: 20130807
  2. DIOVAN [Suspect]
     Dosage: 80 MG, DAILY
     Dates: start: 20130809

REACTIONS (2)
  - Nephrolithiasis [Recovered/Resolved]
  - General physical health deterioration [Recovered/Resolved]
